FAERS Safety Report 7332701-X (Version None)
Quarter: 2011Q1

REPORT INFORMATION
  Report Type: 
  Country: None (occurrence: None)
  Receive Date: 20110304
  Receipt Date: 20110302
  Transmission Date: 20110831
  Serious: Yes (Disabling, Other)
  Sender: FDA-Public Use
  Company Number: DE-ABBOTT-10P-062-0691230-00

PATIENT
  Sex: Male
  Weight: 76 kg

DRUGS (1)
  1. ZEMPLAR [Suspect]
     Indication: HYPERPARATHYROIDISM SECONDARY

REACTIONS (5)
  - CARDIOMEGALY [None]
  - HYPERLIPIDAEMIA [None]
  - LYMPHOMA [None]
  - METASTASES TO LIVER [None]
  - HYPERPHOSPHATAEMIA [None]
